FAERS Safety Report 9577639 (Version 1)
Quarter: 2013Q4

REPORT INFORMATION
  Report Type: Spontaneous
  Country: US (occurrence: US)
  Receive Date: 20131001
  Receipt Date: 20131001
  Transmission Date: 20140711
  Serious: No
  Sender: FDA-Public Use
  Company Number: US-AMGEN-USASP2013008670

PATIENT
  Sex: Female

DRUGS (1)
  1. EPOGEN [Suspect]
     Indication: RENAL FAILURE CHRONIC
     Dosage: 14300 UNIT, THREE TIMES WEEKLY

REACTIONS (3)
  - Therapeutic response decreased [Unknown]
  - Haemoglobin abnormal [Unknown]
  - Injection site pruritus [Unknown]
